FAERS Safety Report 17734534 (Version 1)
Quarter: 2020Q2

REPORT INFORMATION
  Report Type: Spontaneous
  Country: DE (occurrence: DE)
  Receive Date: 20200501
  Receipt Date: 20200501
  Transmission Date: 20200714
  Serious: Yes (Hospitalization)
  Sender: FDA-Public Use
  Company Number: DE-PFIZER INC-2020171720

PATIENT
  Age: 44 Year
  Sex: Male
  Weight: 110 kg

DRUGS (7)
  1. OLANZAPIN [Concomitant]
     Active Substance: OLANZAPINE
     Dosage: 2.5 MG, AS NEEDED
  2. METAMIZOL [Concomitant]
     Active Substance: METAMIZOLE SODIUM
     Dosage: 500 MG, AS NEEDED
  3. PIPAMPERON [Concomitant]
     Active Substance: PIPAMPERONE HYDROCHLORIDE
     Dosage: 40 MG, 0.5-0-0.5-0
  4. PIPAMPERON [Concomitant]
     Active Substance: PIPAMPERONE HYDROCHLORIDE
     Dosage: 40 MG, AS NEEDED
  5. VENLAFAXINE HCL [Suspect]
     Active Substance: VENLAFAXINE HYDROCHLORIDE
     Dosage: 150 MG, 1X/DAY (1-0-0-0)
  6. OLANZAPIN [Concomitant]
     Active Substance: OLANZAPINE
     Dosage: 2.5 MG, 2X/DAY (1-0-0-1)
  7. BISOPROLOL [Concomitant]
     Active Substance: BISOPROLOL
     Dosage: 5 MG, 2X/DAY(1-0-1-0)

REACTIONS (5)
  - Nervousness [Unknown]
  - Depressed mood [Unknown]
  - Decreased appetite [Unknown]
  - Restlessness [Unknown]
  - Anxiety [Unknown]
